FAERS Safety Report 5804954-8 (Version None)
Quarter: 2008Q3

REPORT INFORMATION
  Report Type: 
  Country: None (occurrence: None)
  Receive Date: 20080702
  Receipt Date: 20071204
  Transmission Date: 20090109
  Serious: Yes (Other)
  Sender: FDA-Public Use
  Company Number: US-WYE-H01612807

PATIENT
  Age: 61 Year
  Weight: 240 kg

DRUGS (5)
  1. ADVIL [Suspect]
     Indication: GOUT
     Dosage: 1 TO 2 TABLETS AS NEEDED, ORAL
     Route: 048
     Dates: end: 20071101
  2. ADVIL [Suspect]
     Indication: PAIN
     Dosage: 1 TO 2 TABLETS AS NEEDED, ORAL
     Route: 048
     Dates: end: 20071101
  3. INDOMETHACIN [Suspect]
     Indication: DRUG USE FOR UNKNOWN INDICATION
  4. THYROID TAB [Concomitant]
  5. PROTONIX [Concomitant]

REACTIONS (2)
  - OESOPHAGEAL PAIN [None]
  - OESOPHAGITIS [None]
